FAERS Safety Report 6445456-8 (Version None)
Quarter: 2009Q4

REPORT INFORMATION
  Report Type: 
  Country: None (occurrence: None)
  Receive Date: 20091118
  Receipt Date: 20091116
  Transmission Date: 20100525
  Serious: Yes (Death)
  Sender: FDA-Public Use
  Company Number: SE-ABBOTT-09P-150-0608562-00

PATIENT
  Sex: Male

DRUGS (1)
  1. REDUCTIL 15MG [Suspect]
     Indication: OBESITY

REACTIONS (2)
  - LUNG NEOPLASM MALIGNANT [None]
  - MALAISE [None]
